FAERS Safety Report 7688210-1 (Version None)
Quarter: 2011Q3

REPORT INFORMATION
  Report Type: 
  Country: None (occurrence: None)
  Receive Date: 20110817
  Receipt Date: 20110607
  Transmission Date: 20111222
  Serious: No
  Sender: FDA-Public Use
  Company Number: US-GLAXOSMITHKLINE-A0930603A

PATIENT
  Age: 66 Year
  Sex: Female

DRUGS (2)
  1. VOTRIENT [Suspect]
     Indication: RENAL CELL CARCINOMA
     Dosage: 800MG PER DAY
     Route: 048
     Dates: start: 20100917
  2. NO CONCURRENT MEDICATION [Concomitant]

REACTIONS (1)
  - INCREASED TENDENCY TO BRUISE [None]
